FAERS Safety Report 6118867-8 (Version None)
Quarter: 2009Q1

REPORT INFORMATION
  Report Type: 
  Country: None (occurrence: None)
  Receive Date: 20090316
  Receipt Date: 20090303
  Transmission Date: 20090719
  Serious: Yes (Disabling, Other)
  Sender: FDA-Public Use
  Company Number: PHBS2006BR04509

PATIENT
  Age: 51 Year
  Sex: Female
  Weight: 36 kg

DRUGS (5)
  1. VOLTAREN (NVO) [Suspect]
     Indication: INFLAMMATION
     Dosage: I DROP 4 TIMES DAILY
     Dates: end: 20050901
  2. METICORTEN [Concomitant]
     Dosage: 20 MG/DAY
  3. CYLOCORT [Concomitant]
  4. ATROPINA [Concomitant]
     Dosage: 0.5 MG/DAY
  5. PRESMIN [Concomitant]

REACTIONS (16)
  - ABASIA [None]
  - ACTIVITIES OF DAILY LIVING IMPAIRED [None]
  - BIPOLAR DISORDER [None]
  - BLINDNESS [None]
  - DEPOSIT EYE [None]
  - DEPRESSED MOOD [None]
  - EYE IRRITATION [None]
  - EYE LASER SURGERY [None]
  - FALL [None]
  - FRACTURE [None]
  - GLAUCOMA [None]
  - HEADACHE [None]
  - ROAD TRAFFIC ACCIDENT [None]
  - SUICIDAL IDEATION [None]
  - SWELLING FACE [None]
  - WEIGHT DECREASED [None]
